FAERS Safety Report 18920756 (Version 1)
Quarter: 2021Q1

REPORT INFORMATION
  Report Type: Spontaneous
  Country: US (occurrence: US)
  Receive Date: 20210222
  Receipt Date: 20210222
  Transmission Date: 20210420
  Serious: Yes (Hospitalization, Other)
  Sender: FDA-Public Use
  Company Number: US-CIPLA LTD.-2021US01160

PATIENT

DRUGS (3)
  1. PREDNISONE. [Suspect]
     Active Substance: PREDNISONE
     Indication: MANTLE CELL LYMPHOMA REFRACTORY
     Dosage: UNK
     Route: 065
  2. CYCLOPHOSPHAMIDE. [Suspect]
     Active Substance: CYCLOPHOSPHAMIDE
     Indication: MANTLE CELL LYMPHOMA REFRACTORY
     Dosage: UNK
     Route: 065
  3. DOXORUBICIN [Suspect]
     Active Substance: DOXORUBICIN
     Indication: MANTLE CELL LYMPHOMA REFRACTORY
     Dosage: UNK
     Route: 065

REACTIONS (4)
  - Neutropenia [Recovered/Resolved]
  - COVID-19 [Not Recovered/Not Resolved]
  - Secondary immunodeficiency [Unknown]
  - Thrombocytopenia [Recovered/Resolved]
